FAERS Safety Report 5710942-2 (Version None)
Quarter: 2008Q2

REPORT INFORMATION
  Report Type: 
  Country: None (occurrence: None)
  Receive Date: 20080421
  Receipt Date: 20080415
  Transmission Date: 20081010
  Serious: Yes (Other)
  Sender: FDA-Public Use
  Company Number: PHNU2008DE01573

PATIENT
  Age: 68 Year
  Sex: Male

DRUGS (3)
  1. ZOMETA [Suspect]
     Dosage: 4 MG, QMO
     Route: 042
  2. IRINOTECAN HCL [Concomitant]
     Indication: METASTASIS
  3. BEVACIZUMAB [Concomitant]
     Indication: METASTASIS

REACTIONS (1)
  - OSTEONECROSIS [None]
